FAERS Safety Report 11312191 (Version 1)
Quarter: 2015Q3

REPORT INFORMATION
  Report Type: Spontaneous
  Country: DK (occurrence: FR)
  Receive Date: 20150727
  Receipt Date: 20150727
  Transmission Date: 20151125
  Serious: Yes (Hospitalization)
  Sender: FDA-Public Use
  Company Number: FR-FRI-1000078486

PATIENT
  Age: 46 Year
  Sex: Female

DRUGS (2)
  1. ARIXTRA [Interacting]
     Active Substance: FONDAPARINUX SODIUM
     Indication: ANTIPLATELET THERAPY
     Route: 058
     Dates: start: 20130423, end: 20130504
  2. ESCITALOPRAM [Suspect]
     Active Substance: ESCITALOPRAM OXALATE
     Indication: DEPRESSION
     Route: 048

REACTIONS (3)
  - Subdural haematoma [Recovered/Resolved]
  - Drug interaction [Unknown]
  - Headache [Unknown]

NARRATIVE: CASE EVENT DATE: 20130430
